FAERS Safety Report 7522795-0 (Version None)
Quarter: 2011Q2

REPORT INFORMATION
  Report Type: 
  Country: None (occurrence: None)
  Receive Date: 20110603
  Receipt Date: 20110524
  Transmission Date: 20111010
  Serious: Yes (Other)
  Sender: FDA-Public Use
  Company Number: CA-PFIZER INC-2011090764

PATIENT
  Age: 43 Year
  Sex: Male
  Weight: 113.38 kg

DRUGS (8)
  1. PRISTIQ [Suspect]
     Indication: DEPRESSION
     Dosage: 50 MG TABLET, 1X DAY IN THE MORNING
     Dates: end: 20110510
  2. PRISTIQ [Suspect]
     Indication: CYCLOTHYMIC DISORDER
  3. REVIA [Concomitant]
     Indication: ALCOHOL USE
     Dosage: 50 MG, SPORADICALLY
  4. TRAZODONE [Concomitant]
  5. LORAZEPAM [Concomitant]
  6. ANDROGEL [Concomitant]
     Dosage: 5 G, 1X/DAY
     Dates: start: 20090801
  7. TYLENOL-500 [Concomitant]
     Dosage: UNK
  8. LAMOTRIGINE [Concomitant]
     Indication: MOOD ALTERED
     Dosage: 25 MG, 1X/DAY
     Dates: start: 20110418

REACTIONS (12)
  - DRUG INEFFECTIVE [None]
  - MEDICATION RESIDUE [None]
  - OBSESSIVE-COMPULSIVE DISORDER [None]
  - CHILLS [None]
  - FEAR [None]
  - DISTURBANCE IN ATTENTION [None]
  - WITHDRAWAL SYNDROME [None]
  - DEPRESSION [None]
  - MALAISE [None]
  - ANXIETY [None]
  - CONFUSIONAL STATE [None]
  - MENTAL IMPAIRMENT [None]
